FAERS Safety Report 6154083-1 (Version None)
Quarter: 2009Q2

REPORT INFORMATION
  Report Type: 
  Country: None (occurrence: None)
  Receive Date: 20090414
  Receipt Date: 20090331
  Transmission Date: 20091009
  Serious: Yes (Other)
  Sender: FDA-Public Use
  Company Number: IT-ROCHE-572271

PATIENT
  Sex: Male

DRUGS (3)
  1. PEG-INTERFERON ALFA 2A (RO 25-8310) [Suspect]
     Indication: HEPATITIS C
     Route: 058
     Dates: start: 20040125, end: 20040725
  2. RIBAVIRIN [Suspect]
     Indication: HEPATITIS C
     Route: 048
     Dates: start: 20031005
  3. RIBAVIRIN [Suspect]
     Dosage: DOSE REDUCED.
     Route: 048
     Dates: start: 20040115

REACTIONS (1)
  - LYMPHADENOPATHY [None]
